FAERS Safety Report 19126581 (Version 1)
Quarter: 2021Q2

REPORT INFORMATION
  Report Type: Spontaneous
  Country: PT (occurrence: PT)
  Receive Date: 20210412
  Receipt Date: 20210412
  Transmission Date: 20210717
  Serious: Yes (Hospitalization, Other)
  Sender: FDA-Public Use
  Company Number: PT-GILEAD-2020-0494656

PATIENT
  Age: 49 Year
  Sex: Male

DRUGS (13)
  1. PARACETAMOL [Concomitant]
     Active Substance: ACETAMINOPHEN
  2. KETAMINE [Concomitant]
     Active Substance: KETAMINE
  3. AZITHROMYCIN ANHYDROUS. [Concomitant]
     Active Substance: AZITHROMYCIN ANHYDROUS
     Dosage: UNK
     Dates: end: 20200907
  4. METOCLOPRAMIDE. [Concomitant]
     Active Substance: METOCLOPRAMIDE
  5. VEKLURY [Suspect]
     Active Substance: REMDESIVIR
     Indication: RESPIRATORY FAILURE
  6. CEFTRIAXONE. [Concomitant]
     Active Substance: CEFTRIAXONE
  7. PANTOPRAZOLE [Concomitant]
     Active Substance: PANTOPRAZOLE
  8. FUROSEMIDE. [Concomitant]
     Active Substance: FUROSEMIDE
  9. VEKLURY [Suspect]
     Active Substance: REMDESIVIR
     Indication: COVID-19 PNEUMONIA
     Dosage: 100 MG
     Route: 042
     Dates: start: 20200904, end: 20200913
  10. NORADRENALINE (NORPINEPHRINE) [Concomitant]
     Active Substance: NOREPINEPHRINE
  11. ENOXAPARIN [Concomitant]
     Active Substance: ENOXAPARIN
  12. PROPOFOL. [Concomitant]
     Active Substance: PROPOFOL
  13. FENTANYL. [Concomitant]
     Active Substance: FENTANYL

REACTIONS (3)
  - Respiratory failure [Unknown]
  - Respiratory disorder [Unknown]
  - Cholestasis [Recovering/Resolving]

NARRATIVE: CASE EVENT DATE: 202009
